FAERS Safety Report 11390822 (Version 1)
Quarter: 2015Q3

REPORT INFORMATION
  Report Type: Other
  Country: DE (occurrence: DE)
  Receive Date: 20150818
  Receipt Date: 20150818
  Transmission Date: 20151125
  Serious: Yes (Hospitalization)
  Sender: FDA-Public Use
  Company Number: DE-LUPIN PHARMACEUTICALS INC.-2015-02440

PATIENT
  Age: 47 Year
  Sex: Female

DRUGS (17)
  1. ZOLDEM [Concomitant]
     Active Substance: ZOLPIDEM TARTRATE
     Indication: PRODUCT USED FOR UNKNOWN INDICATION
     Route: 048
     Dates: start: 20090923, end: 20091119
  2. TAVOR [Concomitant]
     Active Substance: LORAZEPAM
     Route: 048
     Dates: start: 20101005, end: 20101008
  3. ORFIRIL LONG [Suspect]
     Active Substance: VALPROIC ACID
     Indication: PRODUCT USED FOR UNKNOWN INDICATION
     Route: 048
     Dates: start: 20090925, end: 20091013
  4. TAVOR [Concomitant]
     Active Substance: LORAZEPAM
     Route: 048
     Dates: start: 20101009, end: 20101012
  5. TAVOR [Concomitant]
     Active Substance: LORAZEPAM
     Route: 048
     Dates: start: 20091027, end: 20091029
  6. ZYPREXA [Interacting]
     Active Substance: OLANZAPINE
     Indication: PRODUCT USED FOR UNKNOWN INDICATION
     Route: 065
     Dates: start: 20090923, end: 20090929
  7. TAVOR [Concomitant]
     Active Substance: LORAZEPAM
     Route: 048
     Dates: start: 20090924, end: 20091001
  8. TAVOR [Concomitant]
     Active Substance: LORAZEPAM
     Route: 048
     Dates: start: 20101008, end: 20101009
  9. ORFIRIL LONG [Suspect]
     Active Substance: VALPROIC ACID
     Route: 048
     Dates: start: 20091029, end: 20091112
  10. TAVOR [Concomitant]
     Active Substance: LORAZEPAM
     Indication: PRODUCT USED FOR UNKNOWN INDICATION
     Route: 048
     Dates: start: 20090923, end: 20090924
  11. LAMOTRIGINE. [Interacting]
     Active Substance: LAMOTRIGINE
     Indication: PRODUCT USED FOR UNKNOWN INDICATION
     Route: 048
     Dates: start: 20090923, end: 20091204
  12. SEROQUEL [Concomitant]
     Active Substance: QUETIAPINE FUMARATE
     Indication: PRODUCT USED FOR UNKNOWN INDICATION
     Route: 048
     Dates: start: 20091110, end: 20091119
  13. TAVOR [Concomitant]
     Active Substance: LORAZEPAM
     Route: 048
     Dates: start: 20091012, end: 20091016
  14. TAVOR [Concomitant]
     Active Substance: LORAZEPAM
     Route: 048
     Dates: start: 20091016, end: 20091027
  15. ORFIRIL LONG [Suspect]
     Active Substance: VALPROIC ACID
     Route: 048
     Dates: start: 20091013, end: 20091029
  16. ZYPREXA [Interacting]
     Active Substance: OLANZAPINE
     Route: 048
     Dates: start: 20091029, end: 20091110
  17. TAVOR [Concomitant]
     Active Substance: LORAZEPAM
     Route: 048
     Dates: start: 20101001, end: 20101005

REACTIONS (3)
  - Drug interaction [Unknown]
  - Altered state of consciousness [Recovered/Resolved]
  - Toxic encephalopathy [Recovered/Resolved]

NARRATIVE: CASE EVENT DATE: 20091110
